FAERS Safety Report 7119384-9 (Version None)
Quarter: 2010Q4

REPORT INFORMATION
  Report Type: 
  Country: None (occurrence: None)
  Receive Date: 20101123
  Receipt Date: 20101117
  Transmission Date: 20110411
  Serious: Yes (Hospitalization, Other)
  Sender: FDA-Public Use
  Company Number: US-MERCK-1011USA00952

PATIENT
  Age: 71 Year
  Sex: Male

DRUGS (9)
  1. JANUVIA [Suspect]
     Route: 048
     Dates: start: 20080901, end: 20091108
  2. ACTOS [Concomitant]
     Route: 065
  3. PRANDIN [Concomitant]
     Route: 065
  4. METOPROLOL [Concomitant]
     Route: 065
  5. NEXIUM [Concomitant]
     Route: 065
  6. SIMVASTATIN [Concomitant]
     Route: 048
  7. DIOVAN [Concomitant]
     Route: 065
  8. ASPIRIN [Concomitant]
     Route: 065
  9. ADVAIR DISKUS 100/50 [Concomitant]
     Route: 065

REACTIONS (3)
  - METASTASIS [None]
  - PANCREATIC CARCINOMA [None]
  - PANCREATITIS [None]
